FAERS Safety Report 9461567 (Version 2)
Quarter: 2013Q4

REPORT INFORMATION
  Report Type: Spontaneous
  Country: US (occurrence: US)
  Receive Date: 20130816
  Receipt Date: 20131115
  Transmission Date: 20140711
  Serious: Yes (Hospitalization)
  Sender: FDA-Public Use
  Company Number: US-BRISTOL-MYERS SQUIBB COMPANY-19190537

PATIENT
  Age: 50 Year
  Sex: 0

DRUGS (2)
  1. ABILIFY [Suspect]
     Indication: BIPOLAR DISORDER
     Dosage: 5MG?18JUL13-22JUL13?23JUL13
     Route: 048
     Dates: end: 20130804
  2. ABILIFY MAINTENA INJECTION [Suspect]
     Indication: BIPOLAR DISORDER
     Dosage: 18-22JUL13?23JUL-ONG?REG2:16AUG13-11SEP13:21DAYS
     Route: 030
     Dates: start: 20130718, end: 20130911

REACTIONS (1)
  - Schizophrenia, paranoid type [Recovered/Resolved with Sequelae]
